FAERS Safety Report 6157828-X (Version None)
Quarter: 2009Q2

REPORT INFORMATION
  Report Type: 
  Country: None (occurrence: None)
  Receive Date: 20090414
  Receipt Date: 20090330
  Transmission Date: 20091009
  Serious: Yes (Life-Threatening, Hospitalization, Disabling)
  Sender: FDA-Public Use
  Company Number: DSJ-2009-02561

PATIENT
  Age: 83 Year
  Sex: Male
  Weight: 68.1 kg

DRUGS (11)
  1. OLMESARTAN MEDOXOMIL [Suspect]
     Indication: HYPERTENSION
     Dosage: 20 MG (20 MG,1 IN 1 D),PER ORAL
     Route: 048
     Dates: start: 20070404, end: 20090219
  2. CARVEDILOL [Concomitant]
  3. ACETYLSALICYLIC ACID SRT [Concomitant]
  4. PARIET (RABEPRAZOLE SODIUM) (TABLET) (RABEPRAZOLE SODIUM) [Concomitant]
  5. LASIX (FUROSEMIDE SODIUM) (TABLET) (FUROSEMIDE) [Concomitant]
  6. WARFARIN SODIUM [Concomitant]
  7. VASOLAN (VERAPAMIL HYDROCHLORIDE) (TABLET) (VERAPAMIL HYDROCHLORIDE) [Concomitant]
  8. SIGMART (NICORANDIL) (TABLET) (NICORANDIL) [Concomitant]
  9. MAGLAX (MAGNESIUM OXIDE) (TABLET) (MAGNESIUM OXIDE) [Concomitant]
  10. ROHYPNOL (FLUNITRAZEPAM) (TABLET) (FLUNITRAZEPAM) [Concomitant]
  11. SENNOSIDE (SENNOSIDE A+B CALCIUM) (TABLET) (SENNOSIDE A+B CALCIUM) [Concomitant]

REACTIONS (6)
  - ATRIAL FIBRILLATION [None]
  - BLOOD PRESSURE DECREASED [None]
  - CONDITION AGGRAVATED [None]
  - HYPERKALAEMIA [None]
  - RENAL FAILURE [None]
  - SHOCK [None]
